FAERS Safety Report 19165113 (Version 1)
Quarter: 2021Q2

REPORT INFORMATION
  Report Type: Spontaneous
  Country: US (occurrence: US)
  Receive Date: 20210421
  Receipt Date: 20210421
  Transmission Date: 20210717
  Serious: No
  Sender: FDA-Public Use
  Company Number: US-GILEAD-2021-0515567

PATIENT
  Age: 61 Year
  Sex: Male

DRUGS (1)
  1. VEKLURY [Suspect]
     Active Substance: REMDESIVIR
     Indication: PRODUCT USED FOR UNKNOWN INDICATION
     Dosage: ^LOADING DOSE AND AT LEAST ONE MAINTENANCE DOSE^
     Route: 065
     Dates: start: 202101

REACTIONS (1)
  - Dizziness [Not Recovered/Not Resolved]
